FAERS Safety Report 8496862-1 (Version None)
Quarter: 2012Q3

REPORT INFORMATION
  Report Type: 
  Country: None (occurrence: None)
  Receive Date: 20120709
  Receipt Date: 20120627
  Transmission Date: 20120928
  Serious: Yes (Hospitalization)
  Sender: FDA-Public Use
  Company Number: US-ELI_LILLY_AND_COMPANY-US201105002245

PATIENT
  Sex: Female

DRUGS (11)
  1. FORTEO [Suspect]
     Dosage: 20 UG, 3/W
  2. MAGNESIUM SULFATE [Concomitant]
     Dosage: UNK
  3. FORTEO [Suspect]
     Dosage: 20 UG, 3/W
  4. FORTEO [Suspect]
     Indication: OSTEOPOROSIS
     Dosage: 20 UG, QD
  5. FORTEO [Suspect]
     Dosage: 20 UG, QD
  6. NORVASC [Concomitant]
     Dosage: UNK
  7. LEVOTHYROXINE SODIUM [Concomitant]
     Dosage: UNK
  8. CITRACAL [Concomitant]
     Dosage: UNK
  9. FORTEO [Suspect]
     Dosage: 20 UG, QOD
  10. LISINOPRIL [Concomitant]
     Dosage: 10 MG, UNK
  11. VITAMIN D [Concomitant]
     Dosage: UNK

REACTIONS (11)
  - RETINAL DETACHMENT [None]
  - CHEST PAIN [None]
  - MUSCLE SPASMS [None]
  - DRUG PRESCRIBING ERROR [None]
  - CONSTIPATION [None]
  - DRUG INTERACTION [None]
  - PAIN IN JAW [None]
  - ABDOMINAL PAIN UPPER [None]
  - URINARY TRACT INFECTION [None]
  - ARTHRALGIA [None]
  - ABDOMINAL DISCOMFORT [None]
